FAERS Safety Report 9045731 (Version 1)
Quarter: 2013Q1

REPORT INFORMATION
  Report Type: Report from Study
  Country: US (occurrence: US)
  Receive Date: 20130131
  Receipt Date: 20130131
  Transmission Date: 20140127
  Serious: No
  Sender: FDA-Public Use
  Company Number: US-ABBOTT-12P-163-1008280-00

PATIENT
  Age: 37 Year
  Sex: Female

DRUGS (13)
  1. HUMIRA [Suspect]
     Indication: CROHN^S DISEASE
     Dates: start: 20120828
  2. IMURAN [Concomitant]
     Indication: CROHN^S DISEASE
     Dosage: 150MG DAILY
  3. TOPRIMATE [Concomitant]
     Indication: MIGRAINE
  4. OPANA [Concomitant]
     Indication: CROHN^S DISEASE
  5. OXYMORPHONE [Concomitant]
     Indication: BREAKTHROUGH PAIN
  6. WELLBUTRIN [Concomitant]
     Indication: DEPRESSION
     Dosage: 150MG DAILY
  7. WELLBUTRIN [Concomitant]
     Indication: PANIC ATTACK
  8. ESTRADIOL [Concomitant]
     Indication: HORMONE REPLACEMENT THERAPY
     Dosage: 1MG DAILY
  9. LYRICA [Concomitant]
     Indication: FIBROMYALGIA
  10. LOMOTIL [Concomitant]
     Indication: DIARRHOEA
     Dosage: AS NEEDED
  11. EFFEXOR [Concomitant]
     Indication: PANIC ATTACK
     Dosage: 3 TABLETS DAILY
  12. VALTREX [Concomitant]
     Indication: ORAL HERPES
     Dosage: 1GM DAILY
  13. CLONAZEPAM [Concomitant]
     Indication: ANXIETY
     Dosage: UP TO 4 TIMES DAILY

REACTIONS (2)
  - Haemorrhage [Not Recovered/Not Resolved]
  - Rectal haemorrhage [Not Recovered/Not Resolved]
